FAERS Safety Report 11928250 (Version 1)
Quarter: 2016Q1

REPORT INFORMATION
  Report Type: Spontaneous
  Country: US (occurrence: US)
  Receive Date: 20160119
  Receipt Date: 20160119
  Transmission Date: 20160526
  Serious: No
  Sender: FDA-Public Use
  Company Number: US-BAYER-2016-007889

PATIENT
  Age: 32 Year
  Sex: Female

DRUGS (1)
  1. MIRENA [Suspect]
     Active Substance: LEVONORGESTREL
     Indication: MENORRHAGIA
     Dosage: 20 MCG/24HR, CONT
     Route: 015
     Dates: start: 201001, end: 2015

REACTIONS (3)
  - Infertility female [Not Recovered/Not Resolved]
  - Depressed mood [Not Recovered/Not Resolved]
  - Device use error [None]

NARRATIVE: CASE EVENT DATE: 2015
